FAERS Safety Report 17072824 (Version 4)
Quarter: 2019Q4

REPORT INFORMATION
  Report Type: Spontaneous
  Country: GB (occurrence: GB)
  Receive Date: 20191125
  Receipt Date: 20191209
  Transmission Date: 20200122
  Serious: Yes (Hospitalization)
  Sender: FDA-Public Use
  Company Number: GB-PFIZER INC-2019505034

PATIENT
  Age: 57 Year
  Sex: Female
  Weight: 58.5 kg

DRUGS (2)
  1. CISPLATIN. [Suspect]
     Active Substance: CISPLATIN
     Indication: BRAIN NEOPLASM
     Dosage: 39 MG, UNK STRENGTH: 39 MGDOSE: 30 MG/M2
     Route: 042
     Dates: start: 20190912, end: 20190912
  2. GEMCITABINE HYDROCHLORIDE. [Suspect]
     Active Substance: GEMCITABINE HYDROCHLORIDE
     Indication: BRAIN NEOPLASM
     Dosage: 1558 MG, UNK STRENGTH: 1000 MGDOSE: 1000 MILLIGRAM/SQ. METER
     Route: 042
     Dates: start: 20190912, end: 20190912

REACTIONS (4)
  - Off label use [Unknown]
  - Diarrhoea [Recovering/Resolving]
  - Pyrexia [Recovered/Resolved]
  - Product use in unapproved indication [Unknown]

NARRATIVE: CASE EVENT DATE: 20190915
